FAERS Safety Report 4457609-9 (Version None)
Quarter: 2004Q3

REPORT INFORMATION
  Report Type: 
  Country: None (occurrence: None)
  Receive Date: 20040921
  Receipt Date: 20040909
  Transmission Date: 20050211
  Serious: Yes (Life-Threatening, Hospitalization)
  Sender: FDA-Public Use
  Company Number: B0260872A

PATIENT
  Age: 94 Year
  Sex: Male
  Weight: 64.8644 kg

DRUGS (5)
  1. ZOFRAN [Suspect]
     Indication: POST PROCEDURAL NAUSEA
     Dosage: 4 MG/ INTRAVENOUS
     Route: 042
  2. BENSERAZIDE + LEVODOPA [Concomitant]
  3. AMILORIDE HCL AND HYDROCHLOROTHIAZIDE [Concomitant]
  4. ASPIRIN [Concomitant]
  5. GLICLAZIDE [Concomitant]

REACTIONS (2)
  - ATRIAL FIBRILLATION [None]
  - MYOCARDIAL INFARCTION [None]
